FAERS Safety Report 6084330-6 (Version None)
Quarter: 2009Q1

REPORT INFORMATION
  Report Type: 
  Country: None (occurrence: None)
  Receive Date: 20090217
  Receipt Date: 20090203
  Transmission Date: 20090719
  Serious: Yes (Other)
  Sender: FDA-Public Use
  Company Number: 2009AL000709

PATIENT
  Age: 33 Year
  Sex: Male

DRUGS (9)
  1. HALOPERIDOL LACTATE [Suspect]
     Indication: SCHIZOPHRENIA, PARANOID TYPE
     Dosage: 10 MG QD; PO
     Route: 048
     Dates: start: 20060201
  2. RISPERDAL [Concomitant]
  3. RISPERIDONE [Concomitant]
  4. TRIFLUOPERAZINE [Concomitant]
  5. DIAZEPAM [Concomitant]
  6. DEPIXOL [Concomitant]
  7. ZIMOVANE [Concomitant]
  8. VENLAFAXINE HCL [Concomitant]
  9. OLANZAPINE [Concomitant]

REACTIONS (8)
  - CONSTIPATION [None]
  - EMOTIONAL DISTRESS [None]
  - FEAR OF EATING [None]
  - HAEMORRHOIDAL HAEMORRHAGE [None]
  - INSOMNIA [None]
  - INTENTIONAL SELF-INJURY [None]
  - SUICIDE ATTEMPT [None]
  - WEIGHT DECREASED [None]
